FAERS Safety Report 5645554-2 (Version None)
Quarter: 2008Q1

REPORT INFORMATION
  Report Type: 
  Country: None (occurrence: None)
  Receive Date: 20080229
  Receipt Date: 20080207
  Transmission Date: 20080703
  Serious: Yes (Death)
  Sender: FDA-Public Use
  Company Number: GB-RANBAXY-2008RR-12998

PATIENT

DRUGS (6)
  1. CODEINE SUL TAB [Suspect]
     Route: 065
  2. LORAZEPAM [Suspect]
     Route: 065
  3. SERTRALINE HYDROCHLORIDE [Suspect]
     Route: 065
  4. BISACODYL 5MG TABLETS BP [Concomitant]
  5. MORPHINE [Concomitant]
  6. CLONAZEPAM [Concomitant]

REACTIONS (2)
  - RESPIRATORY DEPRESSION [None]
  - SEROTONIN SYNDROME [None]
